FAERS Safety Report 4565033-3 (Version None)
Quarter: 2005Q1

REPORT INFORMATION
  Report Type: 
  Country: None (occurrence: None)
  Receive Date: 20050126
  Receipt Date: 20050113
  Transmission Date: 20050727
  Serious: Yes (Other)
  Sender: FDA-Public Use
  Company Number: 2004093823

PATIENT
  Age: 52 Year
  Sex: Female

DRUGS (1)
  1. PROVERA [Suspect]
     Indication: BREAST CANCER
     Dosage: 1200 MG, ORAL
     Route: 048

REACTIONS (4)
  - ENDOMETRIAL ATROPHY [None]
  - ENDOMETRIAL HYPERTROPHY [None]
  - ENDOMETRITIS DECIDUAL [None]
  - SIGNET-RING CELL CARCINOMA [None]
